FAERS Safety Report 24456688 (Version 2)
Quarter: 2024Q4

REPORT INFORMATION
  Report Type: Spontaneous
  Country: US (occurrence: US)
  Receive Date: 20241017
  Receipt Date: 20241112
  Transmission Date: 20250115
  Serious: No
  Sender: SUNOVION
  Company Number: US-SMPA-2024SPA003658AA

PATIENT

DRUGS (14)
  1. ORGOVYX [Suspect]
     Active Substance: RELUGOLIX
     Indication: Prostate cancer
     Dosage: 360 MG, SINGLE
     Route: 048
     Dates: start: 20230920, end: 20230920
  2. ORGOVYX [Suspect]
     Active Substance: RELUGOLIX
     Dosage: 120 MG, QD
     Route: 048
     Dates: start: 20240921
  3. ADVIL [Concomitant]
     Active Substance: IBUPROFEN
     Route: 065
  4. ALEVE [Concomitant]
     Active Substance: NAPROXEN SODIUM
     Route: 065
  5. DELSYM [Concomitant]
     Active Substance: DEXTROMETHORPHAN
     Route: 065
  6. ACETAMINOPHEN [Concomitant]
     Active Substance: ACETAMINOPHEN
     Route: 065
  7. ELIQUIS [Concomitant]
     Active Substance: APIXABAN
     Route: 065
  8. CHLORHEXIDINE [Concomitant]
     Active Substance: CHLORHEXIDINE
     Route: 065
  9. ALBUTEROL SULFATE [Concomitant]
     Active Substance: ALBUTEROL SULFATE
     Route: 065
  10. ATORVASTATIN [Concomitant]
     Active Substance: ATORVASTATIN
     Route: 065
  11. GABAPENTIN [Concomitant]
     Active Substance: GABAPENTIN
     Route: 065
  12. LOSARTAN [Concomitant]
     Active Substance: LOSARTAN
     Route: 065
  13. MELOXICAM [Concomitant]
     Active Substance: MELOXICAM
     Route: 065
  14. NUBEQA [Concomitant]
     Active Substance: DAROLUTAMIDE
     Route: 065

REACTIONS (3)
  - Dental caries [Unknown]
  - Gingival bleeding [Unknown]
  - Secretion discharge [Unknown]
